FAERS Safety Report 7683079-3 (Version None)
Quarter: 2011Q3

REPORT INFORMATION
  Report Type: 
  Country: None (occurrence: None)
  Receive Date: 20110815
  Receipt Date: 20110803
  Transmission Date: 20111222
  Serious: Yes (Other)
  Sender: FDA-Public Use
  Company Number: CA-JNJFOC-20110803384

PATIENT
  Sex: Female
  Weight: 71 kg

DRUGS (1)
  1. REMICADE [Suspect]
     Indication: CROHN'S DISEASE
     Dosage: ONCE EVERY 6 TO 7 WEEKS; 17 INFUSIONS
     Route: 042

REACTIONS (1)
  - NEOPLASM MALIGNANT [None]
